FAERS Safety Report 12213583 (Version 1)
Quarter: 2016Q1

REPORT INFORMATION
  Report Type: Spontaneous
  Country: US (occurrence: US)
  Receive Date: 20160328
  Receipt Date: 20160328
  Transmission Date: 20160526
  Serious: No
  Sender: FDA-Public Use
  Company Number: US-PFIZER INC-2016146752

PATIENT
  Age: 54 Year
  Sex: Female

DRUGS (6)
  1. INDERAL [Suspect]
     Active Substance: PROPRANOLOL HYDROCHLORIDE
     Dosage: 20 MG, 2X/DAY
     Route: 048
     Dates: start: 20120426
  2. ROCALTROL [Suspect]
     Active Substance: CALCITRIOL
     Dosage: 0.25 UG, EVERY DAY
     Route: 048
     Dates: start: 20120126
  3. ZOFRAN [Suspect]
     Active Substance: ONDANSETRON HYDROCHLORIDE
     Dosage: 4 MG, AS NEEDED
     Route: 048
     Dates: start: 20120426
  4. SERTRALINE HCL [Suspect]
     Active Substance: SERTRALINE HYDROCHLORIDE
     Dosage: 100 MG, 1X/DAY
     Route: 048
     Dates: start: 20130916
  5. KLONOPIN [Suspect]
     Active Substance: CLONAZEPAM
     Dosage: 1 MG, 3X/DAY
     Route: 048
     Dates: start: 20141020
  6. LATANOPROST. [Suspect]
     Active Substance: LATANOPROST
     Dosage: 0.005 %, 1X/DAY (1 DROP INTO AFFECTED EYE(S))
     Route: 047
     Dates: start: 20141020

REACTIONS (1)
  - Infectious mononucleosis [Unknown]

NARRATIVE: CASE EVENT DATE: 20150101
